FAERS Safety Report 5557423-7 (Version None)
Quarter: 2007Q4

REPORT INFORMATION
  Report Type: 
  Country: None (occurrence: None)
  Receive Date: 20071214
  Receipt Date: 20071207
  Transmission Date: 20080405
  Serious: Yes (Other)
  Sender: FDA-Public Use
  Company Number: US-SANOFI-SYNTHELABO-A03200706854

PATIENT
  Age: 62 Year
  Sex: Female

DRUGS (4)
  1. HYDROCHLOROTHIAZIDE [Concomitant]
     Indication: ESSENTIAL HYPERTENSION
     Route: 048
  2. CAPECITABINE [Suspect]
     Indication: RECTAL CANCER
     Route: 048
  3. BEVACIZUMAB [Suspect]
     Indication: RECTAL CANCER
     Route: 058
  4. OXALIPLATIN [Suspect]
     Indication: COLORECTAL CANCER
     Route: 042

REACTIONS (9)
  - ASTHENIA [None]
  - BLOOD PRESSURE INCREASED [None]
  - BRAIN OEDEMA [None]
  - CONVULSION [None]
  - EXTENSOR PLANTAR RESPONSE [None]
  - HYPERREFLEXIA [None]
  - MENTAL STATUS CHANGES [None]
  - REVERSIBLE POSTERIOR LEUKOENCEPHALOPATHY SYNDROME [None]
  - TACHYCARDIA [None]
